FAERS Safety Report 18549184 (Version 1)
Quarter: 2020Q4

REPORT INFORMATION
  Report Type: Spontaneous
  Country: US (occurrence: US)
  Receive Date: 20201126
  Receipt Date: 20201126
  Transmission Date: 20210114
  Serious: Yes (Other)
  Sender: FDA-Public Use
  Company Number: US-UNITED THERAPEUTICS-UNT-2020-018275

PATIENT
  Age: 4 Month

DRUGS (14)
  1. CYCLOPHOSPHAMIDE. [Suspect]
     Active Substance: CYCLOPHOSPHAMIDE
     Indication: NEUROBLASTOMA
     Dosage: 400 MG/M2, CYCLICAL DAILY (DURING CYCLE 1 AND 2 AND FROM DAY 1-5)
     Route: 042
  2. INTERLEUKIN-2 [Suspect]
     Active Substance: ALDESLEUKIN
     Indication: NEUROBLASTOMA
     Dosage: 1 MILLION UNITS/M2, CYCLICAL EVERY OTHER DAY FOR 6 DOSES (DURING CYCLE 1 TO 6)
     Route: 058
  3. CISPLATIN. [Suspect]
     Active Substance: CISPLATIN
     Indication: NEUROBLASTOMA
     Dosage: 50 MG/M2, CYCLICAL DAILY OVER 1 HOUR (DURING CYCLE 3 AND 5 FROM DAY 1-4)
     Route: 042
  4. MELPHALAN. [Suspect]
     Active Substance: MELPHALAN
     Indication: NEUROBLASTOMA
     Dosage: UNK
     Route: 065
  5. UNITUXIN [Suspect]
     Active Substance: DINUTUXIMAB
     Indication: NEUROBLASTOMA
     Dosage: 17.5 MG/M2 (DURING CYCLE 1 TO 6; POST-CONSOLIDATION)
     Route: 041
  6. ETOPOSIDE. [Suspect]
     Active Substance: ETOPOSIDE
     Indication: NEUROBLASTOMA
     Dosage: 200 MG/M2, CYCLICAL OVER 1 HOUR (DURING CYCLE 3 AND 5 FROM DAY 1-4)
     Route: 042
  7. CYCLOPHOSPHAMIDE. [Suspect]
     Active Substance: CYCLOPHOSPHAMIDE
     Dosage: 2.1 GM/M2, CYCLICAL DAILY, (DAY 1 AND 2) (DURING CYCLE  4 AND 6)
     Route: 042
  8. TOPOTECAN [Suspect]
     Active Substance: TOPOTECAN HYDROCHLORIDE
     Indication: NEUROBLASTOMA
     Dosage: 1.2 MG/M2, CYCLICAL DAILY (DURING CYCLE 1 AND 2 FROM DAY 1-5)
     Route: 042
  9. GM-CSF (GRANULOCYTE-MACROPHAGE COLONY-STIMULATING FACTOR) [Suspect]
     Active Substance: GRANULOCYTE-MACROPHAGE COLONY-STIMULATING FACTOR
     Indication: NEUROBLASTOMA
     Dosage: 250 MCG/M2/DAY, CYCLICAL DAILY [BEGAN ON DAY 7 (DURING CYCLE 1 TO 6 AND AS POST-CONSOLIDATION)]
     Route: 042
  10. VINCRISTINE [Suspect]
     Active Substance: VINCRISTINE
     Indication: NEUROBLASTOMA
     Dosage: 0.67 MG/M2/DOSE, CYCLICAL (DURING CYCLE 4 AND 6 FROM DAY 1-3)
     Route: 065
  11. MESNA. [Suspect]
     Active Substance: MESNA
     Indication: NEUROBLASTOMA
     Dosage: 525 MG/M2, CYCLICAL; PRIOR TO CYCLOPHOSPHAMIDE INFUSION AND AGAIN AT 4, 8, 12 HR (DURING CYCLE 4, 6)
     Route: 042
  12. DOXORUBICIN [Suspect]
     Active Substance: DOXORUBICIN
     Indication: NEUROBLASTOMA
     Dosage: 25 MG/M2, CYCLICAL DAILY OVER 1 HOUR (DURING CYCLE 4 AND 6 FROM DAY 1-3)
     Route: 042
  13. BUSULFAN. [Suspect]
     Active Substance: BUSULFAN
     Indication: NEUROBLASTOMA
     Dosage: UNK
     Route: 065
  14. ISOTRETINOIN. [Suspect]
     Active Substance: ISOTRETINOIN
     Indication: NEUROBLASTOMA
     Dosage: UNK
     Route: 065

REACTIONS (1)
  - Pancytopenia [Unknown]
